FAERS Safety Report 4952330-2 (Version None)
Quarter: 2006Q1

REPORT INFORMATION
  Report Type: 
  Country: None (occurrence: None)
  Receive Date: 20060323
  Receipt Date: 20060307
  Transmission Date: 20060701
  Serious: Yes (Other)
  Sender: FDA-Public Use
  Company Number: JP-AVENTIS-200610745JP

PATIENT
  Age: 52 Year
  Sex: Female

DRUGS (2)
  1. ALLEGRA [Suspect]
     Indication: SEASONAL ALLERGY
     Route: 048
  2. BAYNAS [Concomitant]

REACTIONS (4)
  - DIARRHOEA [None]
  - NAUSEA [None]
  - OEDEMA PERIPHERAL [None]
  - RASH GENERALISED [None]
